FAERS Safety Report 14116109 (Version 3)
Quarter: 2017Q4

REPORT INFORMATION
  Report Type: Spontaneous
  Country: FR (occurrence: FR)
  Receive Date: 20171023
  Receipt Date: 20171130
  Transmission Date: 20180321
  Serious: Yes (Other)
  Sender: FDA-Public Use
  Company Number: FR-MERCK KGAA-2031173

PATIENT
  Age: 76 Year
  Sex: Female

DRUGS (15)
  1. DIFFU-K [Concomitant]
     Active Substance: POTASSIUM CHLORIDE
  2. MAALOX ANTACID [Concomitant]
     Active Substance: ALUMINUM HYDROXIDE\DIMETHICONE\MAGNESIUM HYDROXIDE
  3. CORTANCYL [Concomitant]
     Active Substance: PREDNISONE
  4. NOVOTHYROX [Suspect]
     Active Substance: LEVOTHYROXINE SODIUM
     Indication: POST PROCEDURAL HYPOTHYROIDISM
     Dates: start: 201703
  5. XARELTO [Concomitant]
     Active Substance: RIVAROXABAN
  6. CORDARONE [Concomitant]
     Active Substance: AMIODARONE HYDROCHLORIDE
  7. TAHOR [Concomitant]
     Active Substance: ATORVASTATIN CALCIUM
  8. DAFALGAN CODEINE [Concomitant]
     Active Substance: ACETAMINOPHEN\CODEINE PHOSPHATE
  9. IALUSET(HYALURONIC ACID)(HYALURONIC ACID) [Concomitant]
  10. LASILIX [Concomitant]
     Active Substance: FUROSEMIDE
  11. INSULIN [Concomitant]
     Active Substance: INSULIN NOS
  12. DERMALIBOUR [Concomitant]
  13. ASPIRIN. [Concomitant]
     Active Substance: ASPIRIN
  14. INEXIUM [Concomitant]
     Active Substance: ESOMEPRAZOLE
  15. MONO-TILDIEM [Concomitant]
     Active Substance: DILTIAZEM HYDROCHLORIDE

REACTIONS (12)
  - Subcutaneous abscess [None]
  - Alopecia [None]
  - Pain [None]
  - Dysmorphism [None]
  - Localised infection [None]
  - Subcutaneous abscess [Not Recovered/Not Resolved]
  - Dizziness [Recovering/Resolving]
  - Abscess limb [None]
  - Paronychia [None]
  - Oral pustule [Recovering/Resolving]
  - Abscess neck [None]
  - Madarosis [None]

NARRATIVE: CASE EVENT DATE: 2017
